FAERS Safety Report 5317646-9 (Version None)
Quarter: 2007Q2

REPORT INFORMATION
  Report Type: 
  Country: None (occurrence: None)
  Receive Date: 20070507
  Receipt Date: 20070426
  Transmission Date: 20071010
  Serious: Yes (Other)
  Sender: FDA-Public Use
  Company Number: PHEH2007US04502

PATIENT
  Age: 53 Year
  Sex: Female

DRUGS (3)
  1. ZELNORM [Suspect]
     Indication: IRRITABLE BOWEL SYNDROME
     Dosage: 6 MG, BID
     Dates: start: 20030101, end: 20070401
  2. PREDNISONE TAB [Concomitant]
     Indication: TENDON DISORDER
  3. GLUCOSAMINE [Concomitant]
     Indication: ARTHRITIS

REACTIONS (2)
  - CARDIAC DISORDER [None]
  - LOSS OF CONSCIOUSNESS [None]
